FAERS Safety Report 4385734-X (Version None)
Quarter: 2004Q2

REPORT INFORMATION
  Report Type: 
  Country: None (occurrence: None)
  Receive Date: 20040628
  Receipt Date: 20040617
  Transmission Date: 20050107
  Serious: Yes (Hospitalization)
  Sender: FDA-Public Use
  Company Number: ES-AMGEN-UK077941

PATIENT
  Sex: Male
  Weight: 81 kg

DRUGS (1)
  1. NEULASTA [Suspect]
     Indication: PRE-EXISTING DISEASE
     Route: 058
     Dates: start: 20040203, end: 20040203

REACTIONS (4)
  - BACK PAIN [None]
  - DIFFICULTY IN WALKING [None]
  - LEUKOCYTOSIS [None]
  - PAIN IN EXTREMITY [None]
